FAERS Safety Report 9009223 (Version 2)
Quarter: 2013Q1

REPORT INFORMATION
  Report Type: Spontaneous
  Country: DE (occurrence: DE)
  Receive Date: 20130111
  Receipt Date: 20130228
  Transmission Date: 20140127
  Serious: Yes (Hospitalization)
  Sender: FDA-Public Use
  Company Number: DE-TEVA-379122GER

PATIENT
  Age: 31 None
  Sex: Male
  Weight: 75 kg

DRUGS (1)
  1. COPAXONE [Suspect]
     Indication: MULTIPLE SCLEROSIS
     Dosage: 20 MILLIGRAM DAILY;
     Route: 058
     Dates: start: 20101008

REACTIONS (2)
  - Myositis [Recovered/Resolved]
  - Sensation of heaviness [Not Recovered/Not Resolved]
